FAERS Safety Report 14665923 (Version 2)
Quarter: 2018Q1

REPORT INFORMATION
  Report Type: Spontaneous
  Country: GB (occurrence: GB)
  Receive Date: 20180321
  Receipt Date: 20180323
  Transmission Date: 20180509
  Serious: Yes (Other)
  Sender: FDA-Public Use
  Company Number: GB-SUNOVION-2018SUN001017

PATIENT

DRUGS (1)
  1. LATUDA [Suspect]
     Active Substance: LURASIDONE HYDROCHLORIDE
     Dosage: 37 MG, UNK
     Route: 048
     Dates: start: 20180301

REACTIONS (4)
  - Soliloquy [Unknown]
  - Restlessness [Unknown]
  - Psychotic disorder [Unknown]
  - Insomnia [Unknown]
